FAERS Safety Report 8410328-6 (Version None)
Quarter: 2012Q2

REPORT INFORMATION
  Report Type: 
  Country: None (occurrence: None)
  Receive Date: 20120529
  Receipt Date: 20120514
  Transmission Date: 20120825
  Serious: Yes (Hospitalization, Other)
  Sender: FDA-Public Use
  Company Number: FK201201419

PATIENT
  Age: 6 Decade
  Sex: Male

DRUGS (6)
  1. IPILIMUMAB (IPILIMUMAB) [Concomitant]
  2. CISPLATIN [Suspect]
     Indication: METASTASES TO LUNG
     Dosage: INTRAVENOUS
     Route: 042
     Dates: start: 20090101
  3. CARBOPLATIN [Suspect]
     Indication: METASTASES TO LUNG
     Dosage: INTRAVENOUS
     Route: 042
     Dates: start: 20110401, end: 20110401
  4. TEMOZOLOMIDE [Concomitant]
  5. PACLITAXEL [Concomitant]
  6. VINBLASTINE SULFATE [Concomitant]

REACTIONS (5)
  - CHEST PAIN [None]
  - CHEST DISCOMFORT [None]
  - ELECTROCARDIOGRAM ST SEGMENT DEPRESSION [None]
  - ELECTROCARDIOGRAM T WAVE INVERSION [None]
  - ANGINA UNSTABLE [None]
